FAERS Safety Report 5124148-1 (Version None)
Quarter: 2006Q4

REPORT INFORMATION
  Report Type: 
  Country: None (occurrence: None)
  Receive Date: 20061010
  Receipt Date: 20060503
  Transmission Date: 20070319
  Serious: No
  Sender: FDA-Public Use
  Company Number: US-BRISTOL-MYERS SQUIBB COMPANY-13365390

PATIENT
  Age: 56 Year

DRUGS (1)
  1. AVAPRO [Suspect]

REACTIONS (2)
  - ASTHENIA [None]
  - PARAESTHESIA [None]
